FAERS Safety Report 8420691 (Version 2)
Quarter: 2013Q2

REPORT INFORMATION
  Report Type: Spontaneous
  Country: HK (occurrence: HK)
  Receive Date: 20120222
  Receipt Date: 20130412
  Transmission Date: 20140414
  Serious: Yes (Other)
  Sender: FDA-Public Use
  Company Number: HK-GLAXOSMITHKLINE-B0783190A

PATIENT
  Sex: 0

DRUGS (1)
  1. SEROXAT [Suspect]
     Indication: ANXIETY
     Route: 065
     Dates: start: 20100601, end: 20100605

REACTIONS (2)
  - Aphasia [Recovered/Resolved]
  - Parkinsonism [Recovered/Resolved]
